FAERS Safety Report 12109130 (Version 2)
Quarter: 2016Q2

REPORT INFORMATION
  Report Type: Report from Study
  Country: US (occurrence: US)
  Receive Date: 20160224
  Receipt Date: 20160414
  Transmission Date: 20160815
  Serious: Yes (Death, Hospitalization)
  Sender: FDA-Public Use
  Company Number: PHEH2016US004349

PATIENT
  Age: 72 Year
  Sex: Male

DRUGS (1)
  1. HYCAMTIN [Suspect]
     Active Substance: TOPOTECAN HYDROCHLORIDE
     Indication: SMALL CELL LUNG CANCER METASTATIC
     Route: 065

REACTIONS (14)
  - Tachycardia [Unknown]
  - Nodule [Unknown]
  - Depression [Unknown]
  - Failure to thrive [Unknown]
  - Back pain [Unknown]
  - Aspartate aminotransferase increased [Unknown]
  - Dysphagia [Unknown]
  - Alanine aminotransferase increased [Unknown]
  - Tenderness [Unknown]
  - Death [Fatal]
  - Petechiae [Unknown]
  - Weight decreased [Unknown]
  - Performance status decreased [Not Recovered/Not Resolved]
  - Asthenia [Unknown]

NARRATIVE: CASE EVENT DATE: 20160216
